FAERS Safety Report 9380354 (Version 1)
Quarter: 2013Q3

REPORT INFORMATION
  Report Type: Spontaneous
  Country: CN (occurrence: CN)
  Receive Date: 20130702
  Receipt Date: 20130702
  Transmission Date: 20140515
  Serious: Yes (Other)
  Sender: FDA-Public Use
  Company Number: CN-GLAXOSMITHKLINE-B0904470A

PATIENT
  Sex: Female
  Weight: 56 kg

DRUGS (3)
  1. LAMIVUDINE-HBV [Suspect]
     Indication: VIRAL INFECTION
     Dosage: 10MG PER DAY
     Route: 048
     Dates: start: 20120410, end: 20121018
  2. ADEFOVIR DIPIVOXIL [Suspect]
     Indication: VIRAL INFECTION
     Dosage: 10MG PER DAY
     Route: 048
     Dates: start: 20120410, end: 20120418
  3. LACTULOSE [Concomitant]

REACTIONS (4)
  - Insomnia [Recovering/Resolving]
  - Dizziness [Recovering/Resolving]
  - Syncope [Recovering/Resolving]
  - Fatigue [Recovering/Resolving]
